FAERS Safety Report 11940825 (Version 2)
Quarter: 2016Q1

REPORT INFORMATION
  Report Type: Spontaneous
  Country: KR (occurrence: KR)
  Receive Date: 20160122
  Receipt Date: 20160127
  Transmission Date: 20160526
  Serious: Yes (Other)
  Sender: FDA-Public Use
  Company Number: PHHY2016KR006671

PATIENT
  Age: 6 Month
  Sex: Female

DRUGS (9)
  1. MYCOPHENOLATE MOFETIL. [Suspect]
     Active Substance: MYCOPHENOLATE MOFETIL
     Indication: STEM CELL TRANSPLANT
     Route: 065
  2. BUSULFAN [Concomitant]
     Active Substance: BUSULFAN
     Indication: SURGICAL PRECONDITIONING
     Dosage: 7.2 MG/KG, UNK
     Route: 065
  3. CYCLOPHOSPHAMIDE. [Concomitant]
     Active Substance: CYCLOPHOSPHAMIDE
     Indication: SURGICAL PRECONDITIONING
     Dosage: 100 MG/KG, UNK
     Route: 065
  4. FLUDARABINE [Concomitant]
     Active Substance: FLUDARABINE PHOSPHATE
     Indication: SURGICAL PRECONDITIONING
     Dosage: 150 MG/M2, UNK
     Route: 065
  5. CICLOSPORIN [Suspect]
     Active Substance: CYCLOSPORINE
     Indication: STEM CELL TRANSPLANT
     Route: 065
  6. CICLOSPORIN [Suspect]
     Active Substance: CYCLOSPORINE
     Indication: PROPHYLAXIS AGAINST GRAFT VERSUS HOST DISEASE
  7. METHYLPREDNISOLONE. [Suspect]
     Active Substance: METHYLPREDNISOLONE
     Indication: AUTOIMMUNE HAEMOLYTIC ANAEMIA
     Dosage: 2 MG/KG, QD
     Route: 065
  8. MYCOPHENOLATE MOFETIL. [Suspect]
     Active Substance: MYCOPHENOLATE MOFETIL
     Indication: PROPHYLAXIS AGAINST GRAFT VERSUS HOST DISEASE
  9. ANTITHYMOCYTE IMMUNOGLOBULIN (RABBIT) [Concomitant]
     Active Substance: LAPINE T-LYMPHOCYTE IMMUNE GLOBULIN
     Indication: SURGICAL PRECONDITIONING
     Dosage: 7.5 MG/KG, UNK
     Route: 065

REACTIONS (6)
  - Ocular icterus [Recovered/Resolved]
  - Drug ineffective [Unknown]
  - Autoimmune haemolytic anaemia [Recovered/Resolved]
  - Reticulocytopenia [Recovered/Resolved]
  - Conjunctivitis [Recovered/Resolved]
  - Pallor [Recovered/Resolved]
